FAERS Safety Report 10886545 (Version 3)
Quarter: 2015Q2

REPORT INFORMATION
  Report Type: Spontaneous
  Country: JP (occurrence: JP)
  Receive Date: 20150304
  Receipt Date: 20150414
  Transmission Date: 20150821
  Serious: Yes (Life-Threatening, Other)
  Sender: FDA-Public Use
  Company Number: JP-BAYER-2014-180841

PATIENT
  Age: 77 Year
  Sex: Male
  Weight: 67.12 kg

DRUGS (8)
  1. NEXAVAR [Suspect]
     Active Substance: SORAFENIB
     Indication: HEPATOCELLULAR CARCINOMA
     Dosage: DAILY DOSE 800 MG
     Route: 048
     Dates: start: 20140109
  2. NEXAVAR [Suspect]
     Active Substance: SORAFENIB
     Indication: HEPATOCELLULAR CARCINOMA
     Dosage: DAILY DOSE 600 MG
     Route: 048
     Dates: start: 20131024, end: 20140108
  3. PASTARON [Concomitant]
     Active Substance: UREA
     Dosage: UNK
     Route: 061
     Dates: start: 20130208
  4. NEXAVAR [Suspect]
     Active Substance: SORAFENIB
     Indication: HEPATOCELLULAR CARCINOMA
     Dosage: DAILY DOSE 400 MG
     Route: 048
     Dates: start: 20130212, end: 20131023
  5. KETAS [Concomitant]
     Active Substance: IBUDILAST
     Dosage: DAILY DOSE 30 MG
     Route: 048
  6. ATELEC [Concomitant]
     Active Substance: CILNIDIPINE
     Dosage: DAILY DOSE 5 MG
     Route: 048
  7. LOPRESSOR [Concomitant]
     Active Substance: METOPROLOL TARTRATE
     Dosage: DAILY DOSE 60 MG
     Route: 048
     Dates: start: 20110821
  8. LACTULOSE. [Concomitant]
     Active Substance: LACTULOSE
     Dosage: DAILY DOSE 18 G
     Route: 048
     Dates: start: 20111027

REACTIONS (4)
  - Squamous cell carcinoma of skin [Recovering/Resolving]
  - Palmar-plantar erythrodysaesthesia syndrome [None]
  - Hepatocellular carcinoma [None]
  - Folliculitis [None]

NARRATIVE: CASE EVENT DATE: 2014
